FAERS Safety Report 7483546-1 (Version None)
Quarter: 2011Q2

REPORT INFORMATION
  Report Type: 
  Country: None (occurrence: None)
  Receive Date: 20110517
  Receipt Date: 20110506
  Transmission Date: 20111010
  Serious: Yes (Hospitalization)
  Sender: FDA-Public Use
  Company Number: US-AMGEN-USASP2011024136

PATIENT
  Age: 87 Year
  Sex: Female
  Weight: 78.005 kg

DRUGS (1)
  1. PROCRIT [Suspect]
     Indication: ANAEMIA
     Dosage: UNK
     Route: 058
     Dates: start: 20070101

REACTIONS (3)
  - WEIGHT DECREASED [None]
  - BLADDER PROLAPSE [None]
  - INFLUENZA [None]
